FAERS Safety Report 10595406 (Version 1)
Quarter: 2014Q4

REPORT INFORMATION
  Report Type: Spontaneous
  Country: US (occurrence: US)
  Receive Date: 20141120
  Receipt Date: 20141120
  Transmission Date: 20150529
  Serious: Yes (Hospitalization)
  Sender: FDA-Public Use
  Company Number: PHEH2014US022400

PATIENT
  Age: 16 Year
  Sex: Male
  Weight: 121 kg

DRUGS (8)
  1. LITHIUM CARBONATE. [Concomitant]
     Active Substance: LITHIUM CARBONATE
     Indication: PROPHYLAXIS
     Dosage: 600 MG, BID
     Route: 048
  2. CLOZARIL [Suspect]
     Active Substance: CLOZAPINE
     Indication: AGGRESSION
     Dosage: 325 MG, QD (DAILY DOSE)
     Route: 048
  3. TRILAFON [Suspect]
     Active Substance: PERPHENAZINE
     Indication: PRODUCT USED FOR UNKNOWN INDICATION
     Dosage: 16 MG, TID
     Route: 048
  4. COGENTIN [Concomitant]
     Active Substance: BENZTROPINE MESYLATE
     Indication: SALIVARY HYPERSECRETION
     Dosage: 04 MG, BID
     Route: 048
  5. CLOZARIL [Suspect]
     Active Substance: CLOZAPINE
     Dosage: 300 MG, QD (DAILY DOSE)
     Route: 048
  6. CLOZARIL [Suspect]
     Active Substance: CLOZAPINE
     Indication: PSYCHOTIC DISORDER
     Dosage: 100 MG, TID
     Route: 048
  7. DEPAKOTE ER [Suspect]
     Active Substance: DIVALPROEX SODIUM
     Indication: PROPHYLAXIS
     Route: 065
  8. CLONIDINE. [Concomitant]
     Active Substance: CLONIDINE
     Indication: HYPERTENSION
     Dosage: 0.05 MG, BID
     Route: 048

REACTIONS (1)
  - Generalised tonic-clonic seizure [Recovered/Resolved]

NARRATIVE: CASE EVENT DATE: 201408
